FAERS Safety Report 6051218-6 (Version None)
Quarter: 2009Q1

REPORT INFORMATION
  Report Type: 
  Country: None (occurrence: None)
  Receive Date: 20090121
  Receipt Date: 20090112
  Transmission Date: 20090719
  Serious: Yes (Death)
  Sender: FDA-Public Use
  Company Number: 2009000003

PATIENT
  Age: 55 Year
  Sex: Male

DRUGS (8)
  1. ERLOTINIB (ERLOTINIB) (TABLET) (ERLOTINIB) [Suspect]
     Indication: LUNG NEOPLASM MALIGNANT
     Dosage: (150 MG, QD), ORAL
     Route: 048
     Dates: start: 20081029
  2. BEVACIZUMAB (INJECTION FOR INFUSION) [Suspect]
     Dosage: (15 MG/KG), INTRAVENOUS
     Route: 042
     Dates: start: 20081029
  3. NEXIUM [Concomitant]
  4. METOCLOPRAMIDE HCL [Concomitant]
  5. DURAGESIC-100 [Concomitant]
  6. ENOXAPARIN SODIUM [Concomitant]
  7. ASPIRIN [Concomitant]
  8. SYMBICORT (SYMBICORT) [Concomitant]

REACTIONS (2)
  - LOSS OF CONSCIOUSNESS [None]
  - PULMONARY HAEMORRHAGE [None]
